FAERS Safety Report 10086073 (Version 1)
Quarter: 2014Q2

REPORT INFORMATION
  Report Type: Spontaneous
  Country: US (occurrence: US)
  Receive Date: 20140418
  Receipt Date: 20140418
  Transmission Date: 20141212
  Serious: Yes (Other)
  Sender: FDA-Public Use
  Company Number: US-PAR PHARMACEUTICAL, INC-2014SCPR009004

PATIENT
  Sex: 0

DRUGS (1)
  1. FENTANYL TRANSDERMAL SYSTEM [Suspect]
     Indication: PAIN
     Dosage: 1 PATCH, EVERY 36 HOURS
     Route: 062
     Dates: end: 201404

REACTIONS (9)
  - Loss of consciousness [Recovered/Resolved]
  - Overdose [Unknown]
  - Abdominal discomfort [Recovered/Resolved]
  - Somnolence [Recovered/Resolved]
  - Dry mouth [Recovered/Resolved]
  - Dizziness [Recovered/Resolved]
  - Headache [Recovered/Resolved]
  - Malaise [Recovered/Resolved]
  - Product quality issue [Unknown]
